FAERS Safety Report 16312495 (Version 1)
Quarter: 2019Q2

REPORT INFORMATION
  Report Type: Spontaneous
  Country: US (occurrence: US)
  Receive Date: 20190515
  Receipt Date: 20190515
  Transmission Date: 20190711
  Serious: Yes (Life-Threatening, Other)
  Sender: FDA-Public Use
  Company Number: US-HIKMA PHARMACEUTICALS USA INC.-US-H14001-19-03108

PATIENT
  Sex: Male

DRUGS (1)
  1. MEPERIDINE [Suspect]
     Active Substance: MEPERIDINE
     Indication: PRODUCT USED FOR UNKNOWN INDICATION
     Dosage: UP TO 10 TABLETS A DAY IF NECESSARY
     Route: 065

REACTIONS (2)
  - Underdose [Unknown]
  - Terminal state [Unknown]
